FAERS Safety Report 5026411-1 (Version None)
Quarter: 2006Q2

REPORT INFORMATION
  Report Type: 
  Country: None (occurrence: None)
  Receive Date: 20060615
  Receipt Date: 20060609
  Transmission Date: 20061013
  Serious: Yes (Other)
  Sender: FDA-Public Use
  Company Number: 2006UW12430

PATIENT
  Age: 44 Year
  Sex: Female
  Weight: 74.4 kg

DRUGS (8)
  1. FASLODEX [Suspect]
     Indication: BREAST CANCER FEMALE
     Route: 048
  2. ZESTRIL [Concomitant]
     Route: 048
  3. PERCOCET [Concomitant]
  4. LORAZEPAM [Concomitant]
  5. COUMADIN [Concomitant]
  6. LABETALOL [Concomitant]
  7. CLONAPIN [Concomitant]
  8. PHENERGAN HCL [Concomitant]

REACTIONS (2)
  - BLOOD CREATINE PHOSPHOKINASE INCREASED [None]
  - RHABDOMYOLYSIS [None]
